FAERS Safety Report 4429294-3 (Version None)
Quarter: 2004Q3

REPORT INFORMATION
  Report Type: 
  Country: None (occurrence: None)
  Receive Date: 20040818
  Receipt Date: 20040818
  Transmission Date: 20050211
  Serious: Yes (Life-Threatening, Hospitalization)
  Sender: FDA-Public Use
  Company Number: None

PATIENT
  Age: 45 Year
  Sex: Female
  Weight: 85 kg

DRUGS (1)
  1. LITHIUM CARBONATE [Suspect]
     Indication: BIPOLAR DISORDER
     Dosage: 450 MG BID ORAL
     Route: 048
     Dates: start: 19991220, end: 20040212

REACTIONS (6)
  - DISORIENTATION [None]
  - HYPOTENSION [None]
  - LETHARGY [None]
  - RENAL IMPAIRMENT [None]
  - SEDATION [None]
  - THERAPEUTIC AGENT TOXICITY [None]
